FAERS Safety Report 23481366 (Version 1)
Quarter: 2024Q1

REPORT INFORMATION
  Report Type: Spontaneous
  Country: US (occurrence: None)
  Receive Date: 20240202
  Receipt Date: 20240202
  Transmission Date: 20240410
  Serious: Yes (Hospitalization)
  Sender: FDA-Public Use
  Company Number: None

PATIENT
  Sex: Female

DRUGS (16)
  1. KESIMPTA [Suspect]
     Active Substance: OFATUMUMAB
     Indication: Multiple sclerosis
     Route: 058
     Dates: start: 20220816
  2. BENZONATATE [Concomitant]
  3. CEFADROXIL [Concomitant]
  4. FLUCONAZOLE [Concomitant]
  5. LEVOTHYROXIN [Concomitant]
  6. LEVOTHYROXIN 125MCG [Concomitant]
  7. LEVOTHYROXIN TAB 137MCG [Concomitant]
  8. METRONIDAZOL TAB 500MG [Concomitant]
  9. NAPROXEN TAB 500MG [Concomitant]
  10. NITROFURANTN CAP 100MG [Concomitant]
  11. NUVARING MIS [Concomitant]
  12. SERTRALINE TAB 100MG [Concomitant]
  13. SERTRALINE TAB 50MG [Concomitant]
  14. TIZANIDINE TAB 4MG [Concomitant]
  15. VALACYCLOVIR TAB 1GM [Concomitant]
  16. VALSARTAN TAB 160MG [Concomitant]

REACTIONS (2)
  - Hospitalisation [None]
  - Therapy interrupted [None]
